FAERS Safety Report 10957245 (Version 1)
Quarter: 2015Q1

REPORT INFORMATION
  Report Type: Spontaneous
  Country: US (occurrence: US)
  Receive Date: 20150326
  Receipt Date: 20150326
  Transmission Date: 20150721
  Serious: No
  Sender: FDA-Public Use
  Company Number: US-SA-2015SA025061

PATIENT
  Sex: Female

DRUGS (1)
  1. AUBAGIO [Suspect]
     Active Substance: TERIFLUNOMIDE
     Dosage: TERIFLUNOMIDE (AT UNKNOWN DOSE) TAKEN BY THE FATHER FROM UNKNOWN DURATION
     Route: 065

REACTIONS (1)
  - Exposure via father [Unknown]
